FAERS Safety Report 8991454 (Version 1)
Quarter: 2012Q4

REPORT INFORMATION
  Report Type: 
  Country: US (occurrence: US)
  Receive Date: 20121231
  Receipt Date: 20121231
  Transmission Date: 20130627
  Serious: Yes (Other)
  Sender: FDA-Public Use
  Company Number: US-AMGEN-USASP2012083274

PATIENT
  Sex: Female

DRUGS (2)
  1. ENBREL [Suspect]
     Indication: RHEUMATOID ARTHRITIS
     Dosage: 50 mg, qwk
     Dates: start: 20070305
  2. METHOTREXATE [Concomitant]
     Dosage: 4 to 2.5 mg, qwk
     Dates: start: 2008

REACTIONS (2)
  - Chondropathy [Not Recovered/Not Resolved]
  - Gait disturbance [Not Recovered/Not Resolved]
